FAERS Safety Report 19460497 (Version 1)
Quarter: 2021Q2

REPORT INFORMATION
  Report Type: Spontaneous
  Country: IT (occurrence: IT)
  Receive Date: 20210625
  Receipt Date: 20210625
  Transmission Date: 20210717
  Serious: Yes (Death, Hospitalization)
  Sender: FDA-Public Use
  Company Number: IT-ROCHE-2857629

PATIENT
  Age: 78 Year
  Sex: Male
  Weight: 59 kg

DRUGS (4)
  1. TECENTRIQ [Suspect]
     Active Substance: ATEZOLIZUMAB
     Indication: SQUAMOUS CELL CARCINOMA OF LUNG
     Route: 041
     Dates: start: 20210406, end: 20210429
  2. BENADON [Suspect]
     Active Substance: PYRIDOXINE HYDROCHLORIDE
     Indication: LATENT TUBERCULOSIS
     Route: 048
     Dates: start: 20210403, end: 20210519
  3. RIFADIN [Suspect]
     Active Substance: RIFAMPIN
     Indication: LATENT TUBERCULOSIS
     Route: 048
     Dates: start: 20210403, end: 20210519
  4. NICOZID [Suspect]
     Active Substance: ISONIAZID
     Indication: LATENT TUBERCULOSIS
     Route: 048
     Dates: start: 20210403, end: 20210519

REACTIONS (1)
  - Immune-mediated hepatitis [Fatal]

NARRATIVE: CASE EVENT DATE: 20210519
